FAERS Safety Report 4834760-2 (Version None)
Quarter: 2005Q4

REPORT INFORMATION
  Report Type: 
  Country: None (occurrence: None)
  Receive Date: 20051122
  Receipt Date: 20050927
  Transmission Date: 20060501
  Serious: No
  Sender: FDA-Public Use
  Company Number: US-BRISTOL-MYERS SQUIBB COMPANY-13123146

PATIENT
  Age: 76 Year
  Sex: Female
  Weight: 96 kg

DRUGS (7)
  1. PRAVACHOL [Suspect]
     Indication: BLOOD CHOLESTEROL INCREASED
     Dates: end: 20050926
  2. PROCARDIA [Concomitant]
  3. ASPIRIN [Concomitant]
  4. VITAMINS [Concomitant]
  5. PREVACID [Concomitant]
  6. CALCIUM GLUCONATE [Concomitant]
  7. BIOTIN [Concomitant]

REACTIONS (4)
  - BONE PAIN [None]
  - DIZZINESS [None]
  - PALPITATIONS [None]
  - SENSATION OF HEAVINESS [None]
